FAERS Safety Report 5134821-7 (Version None)
Quarter: 2006Q4

REPORT INFORMATION
  Report Type: 
  Country: None (occurrence: None)
  Receive Date: 20061025
  Receipt Date: 20060404
  Transmission Date: 20070319
  Serious: Yes (Other)
  Sender: FDA-Public Use
  Company Number: PHEH2006US04525

PATIENT
  Age: 65 Year
  Sex: Female

DRUGS (8)
  1. ZOMETA [Suspect]
     Dosage: UNK EVERY 4 WKS
     Dates: end: 20051202
  2. TAXOL + CARBOPLATIN [Concomitant]
  3. GEFITINIB [Concomitant]
  4. VINORELBINE TARTRATE [Concomitant]
  5. GEMZAR [Concomitant]
  6. TAXOTERE [Concomitant]
  7. TARCEVA [Concomitant]
  8. GEMCITABINE [Concomitant]

REACTIONS (9)
  - BONE DISORDER [None]
  - ERYTHEMA [None]
  - LOCAL SWELLING [None]
  - MASTICATION DISORDER [None]
  - ORAL SOFT TISSUE DISORDER [None]
  - OSTEONECROSIS [None]
  - PAIN [None]
  - PERIODONTAL DISEASE [None]
  - TOOTH EXTRACTION [None]
